FAERS Safety Report 8676795 (Version 2)
Quarter: 2013Q4

REPORT INFORMATION
  Report Type: Spontaneous
  Country: US (occurrence: US)
  Receive Date: 20120723
  Receipt Date: 20131101
  Transmission Date: 20140711
  Serious: No
  Sender: FDA-Public Use
  Company Number: US-009507513-1207USA004568

PATIENT
  Age: 19 Year
  Sex: Female
  Weight: 65.76 kg

DRUGS (1)
  1. NUVARING [Suspect]
     Indication: CONTRACEPTION
     Dosage: UNK, QM
     Dates: start: 20120628, end: 20120709

REACTIONS (4)
  - Depression [Unknown]
  - Abdominal pain [Unknown]
  - Nausea [Unknown]
  - Metrorrhagia [Unknown]
